FAERS Safety Report 13651802 (Version 1)
Quarter: 2017Q2

REPORT INFORMATION
  Report Type: Spontaneous
  Country: JP (occurrence: JP)
  Receive Date: 20170614
  Receipt Date: 20170614
  Transmission Date: 20170830
  Serious: Yes (Hospitalization, Other)
  Sender: FDA-Public Use
  Company Number: JP-ELI_LILLY_AND_COMPANY-JP201705011824

PATIENT
  Age: 48 Year
  Sex: Male

DRUGS (6)
  1. IRINOTECAN [Suspect]
     Active Substance: IRINOTECAN
     Indication: COLORECTAL CANCER
     Dosage: 270 MG, UNKNOWN
     Route: 041
     Dates: start: 20161020, end: 20161020
  2. IRINOTECAN [Suspect]
     Active Substance: IRINOTECAN
     Dosage: 285 MG, UNKNOWN
     Route: 041
     Dates: start: 20161228
  3. ERBITUX [Suspect]
     Active Substance: CETUXIMAB
     Indication: COLORECTAL CANCER
     Dosage: 720 MG, UNKNOWN
     Route: 041
     Dates: start: 20161020, end: 20161020
  4. ERBITUX [Suspect]
     Active Substance: CETUXIMAB
     Dosage: 475 MG, WEEKLY (1/W)
     Route: 041
     Dates: start: 20161228
  5. ERBITUX [Suspect]
     Active Substance: CETUXIMAB
     Dosage: 450 MG, UNKNOWN
     Route: 041
     Dates: start: 20161027
  6. MINOCYCLINE [Suspect]
     Active Substance: MINOCYCLINE\MINOCYCLINE HYDROCHLORIDE
     Indication: PROPHYLAXIS
     Dosage: 100 MG, DAILY
     Route: 048

REACTIONS (10)
  - Dyspnoea [Unknown]
  - Blood calcium decreased [Recovered/Resolved]
  - Platelet count decreased [Recovered/Resolved]
  - Strangury [Unknown]
  - White blood cell count decreased [Recovered/Resolved]
  - Acute kidney injury [Recovered/Resolved]
  - Blood potassium increased [Recovered/Resolved]
  - Blood creatinine increased [Recovered/Resolved]
  - Neutrophil count decreased [Recovered/Resolved]
  - Alanine aminotransferase increased [Recovered/Resolved]

NARRATIVE: CASE EVENT DATE: 20161231
